FAERS Safety Report 8762215 (Version 3)
Quarter: 2013Q3

REPORT INFORMATION
  Report Type: Report from Study
  Country: MX (occurrence: MX)
  Receive Date: 20120830
  Receipt Date: 20130718
  Transmission Date: 20140515
  Serious: Yes (Hospitalization, Other)
  Sender: FDA-Public Use
  Company Number: PHHY2012MX045529

PATIENT
  Age: 78 Year
  Sex: Female

DRUGS (4)
  1. CO-DIOVAN [Suspect]
     Indication: HYPERTENSION
     Dosage: 0.5 DF (160 MG VALSA/5 MG HCT), DAILY
     Dates: start: 20120419
  2. CO-DIOVAN [Suspect]
     Dosage: 0.25 DF (160 MG VALSA/12.5 MG HCT), UNK
     Dates: start: 20120515
  3. VENALOT (TROXERUTIN/COUMARIN) [Concomitant]
     Indication: CARDIOVASCULAR DISORDER
     Dosage: 1 TABLET, DAILY
  4. TENORMIN [Concomitant]
     Dosage: 0.5 TABLET, DAILY

REACTIONS (8)
  - Pneumonia [Recovered/Resolved]
  - Somnolence [Recovered/Resolved]
  - Fatigue [Recovered/Resolved]
  - Laziness [Recovered/Resolved]
  - Feeling abnormal [Recovered/Resolved]
  - Hypersensitivity [Recovered/Resolved]
  - Blood pressure decreased [Recovered/Resolved]
  - Wrong technique in drug usage process [Recovered/Resolved]
